FAERS Safety Report 6841207 (Version 3)
Quarter: 2014Q1

REPORT INFORMATION
  Report Type: Spontaneous
  Country: US (occurrence: US)
  Receive Date: 20081210
  Receipt Date: 20140226
  Transmission Date: 20141002
  Serious: Yes (Hospitalization)
  Sender: FDA-Public Use
  Company Number: US-BIOGENIDEC-2008BI032805

PATIENT
  Age: 47 Year
  Sex: Female
  Weight: 87 kg

DRUGS (1)
  1. TYSABRI [Suspect]
     Indication: MULTIPLE SCLEROSIS
     Route: 042
     Dates: start: 20080825

REACTIONS (2)
  - Vaginal haemorrhage [Recovered/Resolved]
  - Bloody discharge [Not Recovered/Not Resolved]
